FAERS Safety Report 9836127 (Version 1)
Quarter: 2014Q1

REPORT INFORMATION
  Report Type: Spontaneous
  Country: DE (occurrence: DE)
  Receive Date: 20140123
  Receipt Date: 20140123
  Transmission Date: 20141002
  Serious: Yes (Disabling)
  Sender: FDA-Public Use
  Company Number: GXKR2014DE000607

PATIENT
  Age: 47 Year
  Sex: Female

DRUGS (1)
  1. ATORVASTATIN HEXAL [Suspect]
     Dosage: 20 MG, QD
     Route: 048
     Dates: start: 201311, end: 201312

REACTIONS (1)
  - Eye inflammation [Recovering/Resolving]
